FAERS Safety Report 18120110 (Version 3)
Quarter: 2020Q4

REPORT INFORMATION
  Report Type: Spontaneous
  Country: US (occurrence: US)
  Receive Date: 20200806
  Receipt Date: 20201105
  Transmission Date: 20210113
  Serious: No
  Sender: FDA-Public Use
  Company Number: US-TEVA-2020-US-1810670

PATIENT
  Sex: Female

DRUGS (13)
  1. XARELTO [Concomitant]
     Active Substance: RIVAROXABAN
  2. FLEXERIL [Concomitant]
     Active Substance: CYCLOBENZAPRINE HYDROCHLORIDE
  3. PRAVASTATIN SODIUM. [Concomitant]
     Active Substance: PRAVASTATIN SODIUM
  4. TRAMADOL HCL ER [Concomitant]
  5. TRADJENTA [Concomitant]
     Active Substance: LINAGLIPTIN
  6. DIGOXIN. [Concomitant]
     Active Substance: DIGOXIN
  7. SYNRIBO [Suspect]
     Active Substance: OMACETAXINE MEPESUCCINATE
     Indication: CHRONIC MYELOID LEUKAEMIA
     Dosage: 2.61MG/0.75ML; BID FOR 14 DAYS OF 28?2.59MG/0.74ML;TWICE DAILY FOR 7 DAYS OF A 28 DAY CYCLE
     Dates: start: 20200722
  8. ZOLPIDEM TARTRATE. [Concomitant]
     Active Substance: ZOLPIDEM TARTRATE
  9. JANUMET XR [Concomitant]
     Active Substance: METFORMIN HYDROCHLORIDE\SITAGLIPTIN PHOSPHATE
  10. METOPROLOL SUCCINATE ER [Concomitant]
     Active Substance: METOPROLOL SUCCINATE
  11. TOPIRAMATE. [Concomitant]
     Active Substance: TOPIRAMATE
  12. LEVOTHYROXINE SODIUM. [Concomitant]
     Active Substance: LEVOTHYROXINE SODIUM
  13. POTASSIUM CHLORIDE. [Concomitant]
     Active Substance: POTASSIUM CHLORIDE
     Route: 065

REACTIONS (7)
  - Injection site erythema [Unknown]
  - Fatigue [Unknown]
  - Blood potassium decreased [Unknown]
  - Decreased appetite [Unknown]
  - Platelet count decreased [Unknown]
  - White blood cell count decreased [Unknown]
  - Haemoglobin decreased [Unknown]
